FAERS Safety Report 6619835-X (Version None)
Quarter: 2010Q1

REPORT INFORMATION
  Report Type: 
  Country: None (occurrence: None)
  Receive Date: 20100309
  Receipt Date: 20100309
  Transmission Date: 20100710
  Serious: Yes (Hospitalization, Other)
  Sender: FDA-Public Use
  Company Number: JP-ROXANE LABORATORIES, INC.-2010-DE-00558GD

PATIENT
  Age: 76 Year
  Sex: Female

DRUGS (16)
  1. SERTRALINE HCL [Suspect]
     Indication: DEPRESSED MOOD
     Dosage: 25 MG
  2. SERTRALINE HCL [Suspect]
     Indication: INSOMNIA
  3. SERTRALINE HCL [Suspect]
     Indication: FATIGUE
  4. SULPIRIDE [Suspect]
     Indication: DEPRESSED MOOD
     Dosage: 300 MG
  5. SULPIRIDE [Suspect]
     Indication: INSOMNIA
  6. SULPIRIDE [Suspect]
     Indication: FATIGUE
  7. ALPRAZOLAM [Suspect]
     Indication: DEPRESSED MOOD
     Dosage: 1.2 MG
  8. ALPRAZOLAM [Suspect]
     Indication: INSOMNIA
  9. ALPRAZOLAM [Suspect]
     Indication: FATIGUE
  10. ZOPICLONE [Suspect]
     Indication: DEPRESSED MOOD
     Dosage: 7.5 MG
  11. ZOPICLONE [Suspect]
     Indication: INSOMNIA
  12. ZOPICLONE [Suspect]
     Indication: FATIGUE
  13. ETIZOLAM [Suspect]
     Indication: DEPRESSED MOOD
     Dosage: 1 MG
  14. ETIZOLAM [Suspect]
     Indication: INSOMNIA
  15. ETIZOLAM [Suspect]
     Indication: FATIGUE
  16. NIFEDIPINE [Suspect]
     Indication: HYPERTENSION
     Dosage: 10 MG

REACTIONS (5)
  - CONTUSION [None]
  - DRUG INTERACTION [None]
  - FALL [None]
  - HEPATIC FUNCTION ABNORMAL [None]
  - SEROTONIN SYNDROME [None]
